FAERS Safety Report 23026958 (Version 1)
Quarter: 2023Q4

REPORT INFORMATION
  Report Type: Spontaneous
  Country: GB (occurrence: GB)
  Receive Date: 20231004
  Receipt Date: 20231004
  Transmission Date: 20240110
  Serious: Yes (Disabling)
  Sender: FDA-Public Use
  Company Number: None

PATIENT

DRUGS (3)
  1. ATORVASTATIN [Suspect]
     Active Substance: ATORVASTATIN
     Indication: Cardiac failure congestive
     Dosage: 20MG ONCE A DAY IN MORNING
     Dates: start: 20211101, end: 20211218
  2. NASONEX [Concomitant]
     Active Substance: MOMETASONE FUROATE
     Indication: Nasal congestion
     Dates: start: 20211124, end: 202112
  3. COCODAMOL [Concomitant]
     Active Substance: ACETAMINOPHEN\CODEINE PHOSPHATE
     Indication: Pain management
     Dates: start: 20120101

REACTIONS (4)
  - Rheumatoid arthritis [Recovered/Resolved with Sequelae]
  - Gait disturbance [Recovering/Resolving]
  - Grip strength decreased [Recovering/Resolving]
  - Cyst [Recovering/Resolving]

NARRATIVE: CASE EVENT DATE: 20211218
